FAERS Safety Report 11928422 (Version 1)
Quarter: 2016Q1

REPORT INFORMATION
  Report Type: Spontaneous
  Country: MY (occurrence: MY)
  Receive Date: 20160119
  Receipt Date: 20160119
  Transmission Date: 20160526
  Serious: Yes (Other)
  Sender: FDA-Public Use
  Company Number: MY-PFIZER INC-2014020027

PATIENT
  Age: 54 Year
  Sex: Male
  Weight: 66.4 kg

DRUGS (6)
  1. UNASYN [Suspect]
     Active Substance: AMPICILLIN SODIUM\SULBACTAM SODIUM
     Indication: SUBACUTE ENDOCARDITIS
     Dosage: 3 G, 4X/DAY
     Route: 042
     Dates: start: 20120618
  2. CHLORPHENIRAMINE. [Concomitant]
     Active Substance: CHLORPHENIRAMINE
     Indication: PRURITUS
     Dosage: 4 MG, 3X/DAY
     Dates: start: 20120619, end: 20120620
  3. CLOXACILLIN [Suspect]
     Active Substance: CLOXACILLIN
     Indication: SUBACUTE ENDOCARDITIS
     Dosage: 2 G, 4X/DAY
     Route: 042
     Dates: start: 20120613, end: 20120626
  4. GENTAMICIN. [Concomitant]
     Active Substance: GENTAMICIN
     Indication: SUBACUTE ENDOCARDITIS
     Dosage: 60 MG, 3X/DAY
     Route: 042
     Dates: start: 20120614, end: 20120619
  5. RANITIDINE [Concomitant]
     Active Substance: RANITIDINE\RANITIDINE HYDROCHLORIDE
     Indication: GASTRIC DISORDER
     Dosage: 150 MG, 1X/DAY
     Dates: start: 20120618, end: 20120628
  6. TRAMADOL. [Concomitant]
     Active Substance: TRAMADOL
     Indication: PAIN MANAGEMENT
     Dosage: 100 MG, 3X/DAY
     Dates: start: 20120613, end: 20120626

REACTIONS (1)
  - Pancytopenia [Not Recovered/Not Resolved]

NARRATIVE: CASE EVENT DATE: 20120618
